FAERS Safety Report 17269999 (Version 3)
Quarter: 2020Q1

REPORT INFORMATION
  Report Type: Spontaneous
  Country: US (occurrence: US)
  Receive Date: 20200114
  Receipt Date: 20200221
  Transmission Date: 20200409
  Serious: No
  Sender: FDA-Public Use
  Company Number: US-PFIZER INC-2019103259

PATIENT
  Age: 73 Year
  Sex: Female
  Weight: 136.5 kg

DRUGS (1)
  1. IBRANCE [Suspect]
     Active Substance: PALBOCICLIB
     Indication: BREAST CANCER
     Dosage: UNK, CYCLIC (125 ONCE A DAY) (28 DAY CYCLE)
     Dates: start: 2018

REACTIONS (1)
  - Viral infection [Recovered/Resolved]
